FAERS Safety Report 8062528-5 (Version None)
Quarter: 2012Q1

REPORT INFORMATION
  Report Type: 
  Country: None (occurrence: None)
  Receive Date: 20120117
  Receipt Date: 20120110
  Transmission Date: 20120608
  Serious: Yes (Other)
  Sender: FDA-Public Use
  Company Number: A0960724A

PATIENT
  Age: 55 Year
  Sex: Female

DRUGS (1)
  1. ALGINIC ACID + ALUMINUM HYDROXIDE + MAGNESIUM CARBONATE (ALGIN.AC+ALUM [Suspect]
     Indication: PRODUCT USED FOR UNKNOWN INDICATION
     Dates: start: 20120110

REACTIONS (5)
  - PHARYNGEAL DISORDER [None]
  - APHASIA [None]
  - THROAT TIGHTNESS [None]
  - DYSPHONIA [None]
  - SWOLLEN TONGUE [None]
